FAERS Safety Report 25183136 (Version 1)
Quarter: 2025Q2

REPORT INFORMATION
  Report Type: Other
  Country: GB (occurrence: GB)
  Receive Date: 20250410
  Receipt Date: 20250410
  Transmission Date: 20250717
  Serious: Yes (Other)
  Sender: MACLEODS
  Company Number: GB-TEVA-VS-3314432

PATIENT

DRUGS (1)
  1. ESCITALOPRAM [Suspect]
     Active Substance: ESCITALOPRAM OXALATE
     Indication: Product used for unknown indication
     Route: 065
     Dates: start: 202212

REACTIONS (8)
  - Blood urine present [Not Recovered/Not Resolved]
  - Abdominal discomfort [Unknown]
  - Blood viscosity decreased [Unknown]
  - Contusion [Not Recovered/Not Resolved]
  - Flatulence [Unknown]
  - Abdominal pain [Unknown]
  - Joint injury [Unknown]
  - Arthralgia [Unknown]

NARRATIVE: CASE EVENT DATE: 20250325
